FAERS Safety Report 24444168 (Version 2)
Quarter: 2024Q4

REPORT INFORMATION
  Report Type: Report from Study
  Country: CA (occurrence: CA)
  Receive Date: 20241016
  Receipt Date: 20241017
  Transmission Date: 20250114
  Serious: No
  Sender: ROCHE
  Company Number: CA-ROCHE-2414453

PATIENT
  Age: 53 Year
  Sex: Female

DRUGS (15)
  1. RITUXAN [Suspect]
     Active Substance: RITUXIMAB
     Indication: Neuromyelitis optica spectrum disorder
     Dosage: PREVIOUS INFUSION: 29/NOV/2021
     Route: 042
     Dates: start: 20190913
  2. RITUXAN [Suspect]
     Active Substance: RITUXIMAB
     Route: 042
  3. RITUXAN [Suspect]
     Active Substance: RITUXIMAB
     Route: 042
  4. RITUXAN [Suspect]
     Active Substance: RITUXIMAB
     Route: 042
  5. RITUXAN [Suspect]
     Active Substance: RITUXIMAB
     Route: 042
  6. RITUXAN [Suspect]
     Active Substance: RITUXIMAB
     Route: 042
  7. RITUXAN [Suspect]
     Active Substance: RITUXIMAB
     Route: 042
  8. CELLCEPT [Suspect]
     Active Substance: MYCOPHENOLATE MOFETIL
     Indication: Product used for unknown indication
     Route: 065
  9. BACLOFEN [Concomitant]
     Active Substance: BACLOFEN
     Indication: Product used for unknown indication
  10. BENADRYL [Concomitant]
     Active Substance: DIPHENHYDRAMINE HYDROCHLORIDE
     Indication: Premedication
     Route: 048
     Dates: start: 20190913
  11. GABAPENTIN [Concomitant]
     Active Substance: GABAPENTIN
     Indication: Product used for unknown indication
  12. NORVASC [Concomitant]
     Active Substance: AMLODIPINE BESYLATE
     Indication: Product used for unknown indication
  13. SOLU-MEDROL [Concomitant]
     Active Substance: METHYLPREDNISOLONE SODIUM SUCCINATE
     Indication: Premedication
     Route: 042
     Dates: start: 20190913
  14. TYLENOL [Concomitant]
     Active Substance: ACETAMINOPHEN
     Indication: Premedication
     Route: 048
     Dates: start: 20190913
  15. TEGRETOL [Concomitant]
     Active Substance: CARBAMAZEPINE

REACTIONS (13)
  - Infusion related reaction [Recovered/Resolved]
  - Blood pressure increased [Unknown]
  - Off label use [Unknown]
  - Faeces discoloured [Recovered/Resolved]
  - Heart rate decreased [Unknown]
  - Blood pressure systolic increased [Unknown]
  - Irritable bowel syndrome [Not Recovered/Not Resolved]
  - Neutrophil count abnormal [Unknown]
  - Lymphocyte count abnormal [Unknown]
  - Blood pressure systolic abnormal [Unknown]
  - Hypertension [Unknown]
  - Infusion related reaction [Recovered/Resolved]
  - Blood pressure fluctuation [Unknown]

NARRATIVE: CASE EVENT DATE: 20190913
